FAERS Safety Report 5288747-9 (Version None)
Quarter: 2007Q2

REPORT INFORMATION
  Report Type: 
  Country: None (occurrence: None)
  Receive Date: 20070405
  Receipt Date: 20070403
  Transmission Date: 20071010
  Serious: Yes (Hospitalization)
  Sender: FDA-Public Use
  Company Number: DE-BOEHRINGER INGELHEIM PHARMACEUTICALS, INC.-2007-DE-01974DE

PATIENT
  Sex: Male
  Weight: 80 kg

DRUGS (2)
  1. MICARDIS HCT [Suspect]
     Indication: HYPERTENSION
     Dosage: 80 MG TELMISARTAN, 12,5 MG HCT
  2. LITHIUM CARBONATE [Concomitant]

REACTIONS (1)
  - ANTIPSYCHOTIC DRUG LEVEL INCREASED [None]
